FAERS Safety Report 6824149-9 (Version None)
Quarter: 2010Q3

REPORT INFORMATION
  Report Type: 
  Country: None (occurrence: None)
  Receive Date: 20100708
  Receipt Date: 20061004
  Transmission Date: 20110219
  Serious: No
  Sender: FDA-Public Use
  Company Number: US-PFIZER INC-2006121946

PATIENT
  Sex: Male
  Weight: 83.46 kg

DRUGS (2)
  1. CHANTIX [Suspect]
     Indication: EX-TOBACCO USER
     Route: 048
     Dates: start: 20060801, end: 20060801
  2. PROSCAR [Concomitant]
     Dates: start: 20030101

REACTIONS (1)
  - URINARY RETENTION [None]
